FAERS Safety Report 15176417 (Version 2)
Quarter: 2018Q4

REPORT INFORMATION
  Report Type: Report from Study
  Country: US (occurrence: US)
  Receive Date: 20180720
  Receipt Date: 20181017
  Transmission Date: 20190204
  Serious: No
  Sender: FDA-Public Use
  Company Number: US-AMGEN-USASL2018087654

PATIENT
  Age: 70 Year
  Sex: Male
  Weight: 139.68 kg

DRUGS (1)
  1. REPATHA [Suspect]
     Active Substance: EVOLOCUMAB
     Indication: PRODUCT USED FOR UNKNOWN INDICATION
     Dosage: 140 MG, UNK
     Route: 065
     Dates: start: 20180122

REACTIONS (3)
  - Urine analysis abnormal [Recovered/Resolved]
  - Muscle spasms [Recovered/Resolved]
  - Urine odour abnormal [Recovered/Resolved]
